FAERS Safety Report 10448784 (Version 1)
Quarter: 2014Q3

REPORT INFORMATION
  Report Type: Spontaneous
  Country: US (occurrence: US)
  Receive Date: 20140912
  Receipt Date: 20140912
  Transmission Date: 20150326
  Serious: No
  Sender: FDA-Public Use
  Company Number: US-AMGEN-USASP2014068828

PATIENT
  Age: 63 Year
  Sex: Female

DRUGS (1)
  1. ENBREL [Suspect]
     Active Substance: ETANERCEPT
     Indication: RHEUMATOID ARTHRITIS
     Dosage: 50 MG, EVERY 17 TO 21 DAYS
     Route: 065
     Dates: start: 20031001

REACTIONS (2)
  - T-lymphocyte count decreased [Not Recovered/Not Resolved]
  - Osteoporosis [Not Recovered/Not Resolved]
